FAERS Safety Report 4434476-0 (Version None)
Quarter: 2004Q3

REPORT INFORMATION
  Report Type: 
  Country: None (occurrence: None)
  Receive Date: 20040726
  Receipt Date: 20040329
  Transmission Date: 20050211
  Serious: No
  Sender: FDA-Public Use
  Company Number: USA040361202

PATIENT
  Age: 79 Year
  Sex: Female
  Weight: 59 kg

DRUGS (8)
  1. FORTEO [Suspect]
     Indication: BONE DENSITY DECREASED
     Dosage: 20 UG/1 DAY
     Dates: start: 20040301, end: 20040322
  2. FORTEO [Suspect]
     Indication: OSTEOPOROSIS
     Dosage: 20 UG/1 DAY
     Dates: start: 20040301, end: 20040322
  3. FORTEO [Suspect]
     Indication: RIB FRACTURE
     Dosage: 20 UG/1 DAY
     Dates: start: 20040301, end: 20040322
  4. CALCIUM [Concomitant]
  5. CENTRUM PERFORMANCE MULTIVITAMIN [Concomitant]
  6. BIOTIN FORTE [Concomitant]
  7. VITAMIN E [Concomitant]
  8. VITAMIN C [Concomitant]

REACTIONS (3)
  - SCAB [None]
  - STOMACH DISCOMFORT [None]
  - STRESS SYMPTOMS [None]
